FAERS Safety Report 8620846-3 (Version None)
Quarter: 2012Q3

REPORT INFORMATION
  Report Type: 
  Country: None (occurrence: None)
  Receive Date: 20120816
  Receipt Date: 20120816
  Transmission Date: 20120928
  Serious: Yes (Hospitalization, Other)
  Sender: FDA-Public Use
  Company Number: None

PATIENT
  Age: 40 Year
  Sex: Female
  Weight: 61.2356 kg

DRUGS (8)
  1. ACETAMINOPHEN, ASPIRIN AND CAFFEINE [Suspect]
  2. ACETAMINOPHEN, ASPIRIN AND CAFFEINE [Suspect]
  3. ACETAMINOPHEN, ASPIRIN AND CAFFEINE [Suspect]
     Indication: HEADACHE
     Dosage: 1-2 TABLETS BID-TID PRN PO
     Route: 048
     Dates: start: 20101003, end: 20110810
  4. ACETAMINOPHEN, ASPIRIN AND CAFFEINE [Suspect]
     Indication: SINUS HEADACHE
     Dosage: 1-2 TABLETS BID-TID PRN PO
     Route: 048
     Dates: start: 20101003, end: 20110810
  5. CYMBALTA [Concomitant]
  6. AMBIEN PRN [Concomitant]
  7. LORAZEPAM [Concomitant]
  8. ACETAMINOPHEN, ASPIRIN AND CAFFEINE [Suspect]

REACTIONS (10)
  - PRODUCT QUALITY ISSUE [None]
  - ECONOMIC PROBLEM [None]
  - POOR QUALITY SLEEP [None]
  - ANXIETY [None]
  - DEPRESSION [None]
  - CONVULSION [None]
  - DISTURBANCE IN ATTENTION [None]
  - IMPAIRED WORK ABILITY [None]
  - IMPAIRED DRIVING ABILITY [None]
  - HEADACHE [None]
